FAERS Safety Report 5764510-7 (Version None)
Quarter: 2008Q2

REPORT INFORMATION
  Report Type: 
  Country: None (occurrence: None)
  Receive Date: 20080610
  Receipt Date: 20080529
  Transmission Date: 20081010
  Serious: Yes (Hospitalization, Other)
  Sender: FDA-Public Use
  Company Number: US-PFIZER INC-2008029877

PATIENT
  Sex: Female
  Weight: 71.7 kg

DRUGS (3)
  1. LYRICA [Suspect]
     Indication: NEURALGIA
     Route: 048
  2. LYRICA [Suspect]
     Indication: COMPLEX REGIONAL PAIN SYNDROME
  3. DARVOCET-N 100 [Suspect]

REACTIONS (5)
  - ASTHENIA [None]
  - DYSARTHRIA [None]
  - DYSTONIA [None]
  - NIGHTMARE [None]
  - SENSORY LOSS [None]
